FAERS Safety Report 7931534-0 (Version None)
Quarter: 2011Q4

REPORT INFORMATION
  Report Type: 
  Country: None (occurrence: None)
  Receive Date: 20111121
  Receipt Date: 20111121
  Transmission Date: 20120403
  Serious: No
  Sender: FDA-Public Use
  Company Number: None

PATIENT
  Age: 56 Year
  Sex: Male
  Weight: 97.522 kg

DRUGS (1)
  1. DEXILANT [Suspect]
     Indication: GASTROOESOPHAGEAL REFLUX DISEASE
     Dosage: 60 MG
     Route: 048
     Dates: start: 20111115, end: 20111117

REACTIONS (5)
  - FATIGUE [None]
  - DEPRESSION [None]
  - SKIN EXFOLIATION [None]
  - DRUG EFFECT DECREASED [None]
  - RASH [None]
